FAERS Safety Report 12661883 (Version 6)
Quarter: 2017Q3

REPORT INFORMATION
  Report Type: Report from Study
  Country: JP (occurrence: JP)
  Receive Date: 20160817
  Receipt Date: 20170908
  Transmission Date: 20171127
  Serious: Yes (Hospitalization, Other)
  Sender: FDA-Public Use
  Company Number: JP-INCYTE CORPORATION-2016IN001171

PATIENT

DRUGS (4)
  1. JAKAVI [Suspect]
     Active Substance: RUXOLITINIB
     Dosage: 7.5 MG, BID
     Route: 048
     Dates: start: 20150902, end: 20150929
  2. JAKAVI [Suspect]
     Active Substance: RUXOLITINIB
     Dosage: 10 MG, BID
     Route: 048
     Dates: start: 20150930
  3. MABLIN [Concomitant]
     Active Substance: BUSULFAN
     Indication: MYELOFIBROSIS
     Dosage: 0.1 G, UNK
     Route: 065
     Dates: end: 20150706
  4. JAKAVI [Suspect]
     Active Substance: RUXOLITINIB
     Indication: MYELOFIBROSIS
     Dosage: 5 MG, BID
     Route: 048
     Dates: start: 20150707, end: 20150901

REACTIONS (12)
  - Abdominal pain upper [Recovering/Resolving]
  - Alanine aminotransferase increased [Unknown]
  - Blood lactate dehydrogenase increased [Unknown]
  - Anaemia [Recovered/Resolved]
  - Platelet count increased [Unknown]
  - Aspartate aminotransferase increased [Unknown]
  - Cardiac failure [Recovering/Resolving]
  - Liver disorder [Recovering/Resolving]
  - Gamma-glutamyltransferase increased [Recovering/Resolving]
  - Pyrexia [Recovering/Resolving]
  - Myelofibrosis [Unknown]
  - C-reactive protein increased [Unknown]

NARRATIVE: CASE EVENT DATE: 20150810
